FAERS Safety Report 9030785 (Version 2)
Quarter: 2013Q1

REPORT INFORMATION
  Report Type: Report from Study
  Country: US (occurrence: US)
  Receive Date: 20130123
  Receipt Date: 20130227
  Transmission Date: 20140127
  Serious: Yes (Death, Life-Threatening, Hospitalization)
  Sender: FDA-Public Use
  Company Number: PHHO2013US001336

PATIENT
  Age: 37 Year
  Sex: Male

DRUGS (3)
  1. TASIGNA [Suspect]
     Indication: LEUKAEMIA
     Dosage: 400 MG, BID
     Route: 048
     Dates: start: 20120612, end: 20121205
  2. ACYCLOVIR [Concomitant]
     Indication: PROPHYLAXIS
     Dosage: 800 MG, BID
     Route: 065
     Dates: start: 20120621
  3. BACTRIM DS [Concomitant]
     Indication: PROPHYLAXIS
     Dosage: UNK
     Dates: start: 20120426

REACTIONS (1)
  - Interstitial lung disease [Fatal]
